FAERS Safety Report 23026208 (Version 1)
Quarter: 2023Q4

REPORT INFORMATION
  Report Type: Spontaneous
  Country: JP (occurrence: JP)
  Receive Date: 20231004
  Receipt Date: 20231004
  Transmission Date: 20240110
  Serious: Yes (Other)
  Sender: FDA-Public Use
  Company Number: JP-MACLEODS PHARMACEUTICALS US LTD-MAC2023043602

PATIENT

DRUGS (4)
  1. CLOBETASOL [Suspect]
     Active Substance: CLOBETASOL
     Indication: Erythrodermic psoriasis
     Dosage: 15 GRAM, Q.W. (ESTIMATED DOSE OF 15 G/WEEK)
     Route: 061
  2. CLOBETASOL [Suspect]
     Active Substance: CLOBETASOL
     Dosage: 5 GRAM, Q.W. (ESTIMATED DOSE OF 15 G/WEEK)
     Route: 061
  3. ETRETINATE [Suspect]
     Active Substance: ETRETINATE
     Indication: Erythrodermic psoriasis
     Dosage: 20 MILLIGRAM, QD, CONTINUOUSLY FOR 35 YEARS
     Route: 048
  4. BRODALUMAB [Concomitant]
     Active Substance: BRODALUMAB
     Indication: Erythrodermic psoriasis
     Dosage: UNK
     Route: 065

REACTIONS (2)
  - Secondary adrenocortical insufficiency [Recovered/Resolved]
  - Skin atrophy [Unknown]
